FAERS Safety Report 6322642-9 (Version None)
Quarter: 2009Q3

REPORT INFORMATION
  Report Type: 
  Country: None (occurrence: None)
  Receive Date: 20090824
  Receipt Date: 20090214
  Transmission Date: 20100115
  Serious: No
  Sender: FDA-Public Use
  Company Number: US-ABBOTT-09P-163-0557757-00

PATIENT
  Sex: Female

DRUGS (8)
  1. NIASPAN [Suspect]
     Indication: DRUG USE FOR UNKNOWN INDICATION
     Dosage: 500 MG Q 2 WEEKS, THEN 1000
     Dates: start: 20090101
  2. NIASPAN [Suspect]
  3. VIATA [Concomitant]
     Indication: DRUG USE FOR UNKNOWN INDICATION
  4. LEVANIR [Concomitant]
     Indication: DRUG USE FOR UNKNOWN INDICATION
     Dosage: 25 UNITS IN AM, 10 UNITS IN PM
  5. ACTOSE/MET [Concomitant]
     Indication: DRUG USE FOR UNKNOWN INDICATION
     Dosage: 15/850
  6. SYNTHROID [Concomitant]
     Indication: DRUG USE FOR UNKNOWN INDICATION
  7. CYMBALTA [Concomitant]
     Indication: DRUG USE FOR UNKNOWN INDICATION
  8. ASPIRIN [Concomitant]
     Indication: DRUG USE FOR UNKNOWN INDICATION

REACTIONS (1)
  - BLOOD GLUCOSE INCREASED [None]
